FAERS Safety Report 10161796 (Version 1)
Quarter: 2014Q2

REPORT INFORMATION
  Report Type: Spontaneous
  Country: JP (occurrence: None)
  Receive Date: 20140507
  Receipt Date: 20140507
  Transmission Date: 20141212
  Serious: Yes (Hospitalization, Other)
  Sender: FDA-Public Use
  Company Number: ABR_01617_2014

PATIENT
  Sex: Female
  Weight: 64 kg

DRUGS (3)
  1. ERYTHROCIN [Suspect]
     Indication: INFECTION PROPHYLAXIS
     Route: 048
     Dates: start: 20000823, end: 20000826
  2. RITODRINE HYDROCHLORIDE [Concomitant]
  3. AMPICILLIN [Concomitant]

REACTIONS (8)
  - Premature separation of placenta [None]
  - Retroplacental haematoma [None]
  - Oligohydramnios [None]
  - Caesarean section [None]
  - Intraventricular haemorrhage [None]
  - Hydrocephalus [None]
  - Cerebral palsy [None]
  - Developmental delay [None]
